FAERS Safety Report 24819574 (Version 4)
Quarter: 2025Q1

REPORT INFORMATION
  Report Type: Spontaneous
  Country: US (occurrence: US)
  Receive Date: 20250108
  Receipt Date: 20250225
  Transmission Date: 20250409
  Serious: Yes (Other)
  Sender: PFIZER
  Company Number: US-PFIZER INC-PV202500001206

PATIENT
  Age: 58 Year
  Sex: Female
  Weight: 79.9 kg

DRUGS (7)
  1. IBRANCE [Suspect]
     Active Substance: PALBOCICLIB
     Indication: Breast cancer female
     Dates: start: 202403, end: 20240812
  2. IBRANCE [Suspect]
     Active Substance: PALBOCICLIB
     Dates: start: 20240820
  3. IBRANCE [Suspect]
     Active Substance: PALBOCICLIB
     Dates: start: 20240829
  4. IBRANCE [Suspect]
     Active Substance: PALBOCICLIB
     Route: 048
  5. IBRANCE [Suspect]
     Active Substance: PALBOCICLIB
     Dosage: 125 MG, ORAL, DAILY, SWALLOW WHOLE
     Route: 048
  6. IBRANCE [Suspect]
     Active Substance: PALBOCICLIB
  7. ANASTROZOLE [Concomitant]
     Active Substance: ANASTROZOLE

REACTIONS (9)
  - Neutropenia [Unknown]
  - Occult blood [Unknown]
  - Oropharyngeal pain [Unknown]
  - Cough [Unknown]
  - Blood test abnormal [Unknown]
  - Fatigue [Unknown]
  - Iron deficiency [Recovered/Resolved]
  - Anaemia [Not Recovered/Not Resolved]
  - Neoplasm progression [Unknown]

NARRATIVE: CASE EVENT DATE: 20240101
